FAERS Safety Report 5479566-9 (Version None)
Quarter: 2007Q3

REPORT INFORMATION
  Report Type: 
  Country: None (occurrence: None)
  Receive Date: 20070913
  Receipt Date: 20070206
  Transmission Date: 20080115
  Serious: Yes (Other)
  Sender: FDA-Public Use
  Company Number: PHEH2007US01711

PATIENT
  Age: 81 Year
  Sex: Female

DRUGS (2)
  1. DIOVAN [Suspect]
     Indication: HYPERTENSION
     Dosage: 80 MG, QD; 160 MG, QD
     Dates: start: 19990101, end: 20040101
  2. DIOVAN [Suspect]
     Indication: HYPERTENSION
     Dosage: 80 MG, QD; 160 MG, QD
     Dates: end: 20040101

REACTIONS (1)
  - HYPERTENSION [None]
